FAERS Safety Report 5898728-X (Version None)
Quarter: 2008Q3

REPORT INFORMATION
  Report Type: 
  Country: None (occurrence: None)
  Receive Date: 20080925
  Receipt Date: 20080509
  Transmission Date: 20090109
  Serious: No
  Sender: FDA-Public Use
  Company Number: A0727259A

PATIENT
  Age: 60 Year
  Sex: Female

DRUGS (4)
  1. WELLBUTRIN XL [Suspect]
     Indication: EMOTIONAL DISORDER
     Dosage: 150MG PER DAY
     Route: 048
     Dates: start: 19970101, end: 20040101
  2. BETA BLOCKER [Concomitant]
  3. CLONOPIN [Concomitant]
  4. PREMARIN [Concomitant]

REACTIONS (3)
  - EMOTIONAL DISORDER [None]
  - HYPERTENSION [None]
  - PERFORMANCE STATUS DECREASED [None]
